FAERS Safety Report 11173178 (Version 1)
Quarter: 2015Q2

REPORT INFORMATION
  Report Type: Spontaneous
  Country: IT (occurrence: IT)
  Receive Date: 20150608
  Receipt Date: 20150608
  Transmission Date: 20150821
  Serious: Yes (Other)
  Sender: FDA-Public Use
  Company Number: IT-B.I. PHARMACEUTICALS,INC./RIDGEFIELD-2015-BI-11030IT

PATIENT
  Age: 59 Year
  Sex: Female

DRUGS (1)
  1. MIRAPEXIN [Suspect]
     Active Substance: PRAMIPEXOLE
     Indication: PARKINSON^S DISEASE
     Route: 048
     Dates: start: 20141005, end: 20141105

REACTIONS (4)
  - Oliguria [Unknown]
  - Asthenia [Unknown]
  - Dyspnoea exertional [Unknown]
  - Oedema [Unknown]

NARRATIVE: CASE EVENT DATE: 20141005
